FAERS Safety Report 12203482 (Version 3)
Quarter: 2016Q2

REPORT INFORMATION
  Report Type: Report from Study
  Country: CL (occurrence: CL)
  Receive Date: 20160323
  Receipt Date: 20160413
  Transmission Date: 20160815
  Serious: Yes (Death, Hospitalization, Other)
  Sender: FDA-Public Use
  Company Number: PHHY2016CL038160

PATIENT
  Age: 31 Year
  Sex: Female

DRUGS (1)
  1. GLIVEC [Suspect]
     Active Substance: IMATINIB MESYLATE
     Indication: ACUTE LYMPHOCYTIC LEUKAEMIA
     Dosage: 400 MG, UNK
     Route: 048
     Dates: start: 20160303, end: 20160317

REACTIONS (12)
  - Septic shock [Fatal]
  - Blood culture positive [Unknown]
  - Abdominal sepsis [Fatal]
  - Aplasia [Unknown]
  - Intra-abdominal pressure increased [Unknown]
  - Bacterial translocation [Unknown]
  - Loss of consciousness [Unknown]
  - Confusional state [Unknown]
  - Neutrophil count decreased [Unknown]
  - Colitis [Unknown]
  - Circulatory collapse [Unknown]
  - Pancytopenia [Unknown]

NARRATIVE: CASE EVENT DATE: 20160319
